FAERS Safety Report 24887456 (Version 4)
Quarter: 2025Q2

REPORT INFORMATION
  Report Type: Spontaneous
  Country: US (occurrence: US)
  Receive Date: 20250127
  Receipt Date: 20250605
  Transmission Date: 20250716
  Serious: Yes (Other)
  Sender: UCB
  Company Number: US-UCBSA-2025003997

PATIENT
  Sex: Female

DRUGS (1)
  1. BIMZELX [Suspect]
     Active Substance: BIMEKIZUMAB-BKZX
     Indication: Ankylosing spondylitis
     Dosage: 160 MILLIGRAM, EV 4 WEEKS
     Route: 058
     Dates: start: 202412

REACTIONS (6)
  - Ankylosing spondylitis [Unknown]
  - Nasopharyngitis [Unknown]
  - Eczema [Unknown]
  - Rash erythematous [Unknown]
  - Muscle twitching [Unknown]
  - Influenza [Unknown]

NARRATIVE: CASE EVENT DATE: 20250101
